FAERS Safety Report 9232223 (Version 1)
Quarter: 2013Q2

REPORT INFORMATION
  Report Type: Spontaneous
  Country: IN (occurrence: IN)
  Receive Date: 20130415
  Receipt Date: 20130415
  Transmission Date: 20140414
  Serious: Yes (Hospitalization, Other)
  Sender: FDA-Public Use
  Company Number: IN-MYLANLABS-2013S1007432

PATIENT
  Age: 30 Year
  Sex: Female

DRUGS (1)
  1. DIGOXIN [Suspect]
     Indication: INTENTIONAL OVERDOSE
     Dosage: 70 TABLETS OF DIGOXIN 0.25MG
     Route: 048

REACTIONS (3)
  - Toxicity to various agents [Recovered/Resolved]
  - Intentional overdose [Recovered/Resolved]
  - Suicide attempt [Recovered/Resolved]
